FAERS Safety Report 25372903 (Version 3)
Quarter: 2025Q3

REPORT INFORMATION
  Report Type: Spontaneous
  Country: US (occurrence: US)
  Receive Date: 20250529
  Receipt Date: 20250822
  Transmission Date: 20251021
  Serious: Yes (Other)
  Sender: BAYER HEALTHCARE PHARMACEUTICALS INC.
  Company Number: US-BAYER-2025A069083

PATIENT
  Age: 70 Year
  Sex: Female

DRUGS (6)
  1. JIVI [Suspect]
     Active Substance: DAMOCTOCOG ALFA PEGOL
     Indication: Factor VIII deficiency
     Route: 042
     Dates: start: 202203
  2. JIVI [Suspect]
     Active Substance: DAMOCTOCOG ALFA PEGOL
     Indication: Prophylaxis
     Route: 042
     Dates: start: 202301
  3. JIVI [Suspect]
     Active Substance: DAMOCTOCOG ALFA PEGOL
     Indication: Factor VIII deficiency
     Route: 042
  4. JIVI [Suspect]
     Active Substance: DAMOCTOCOG ALFA PEGOL
     Indication: Factor VIII deficiency
     Route: 042
     Dates: start: 20250510, end: 20250510
  5. JIVI [Suspect]
     Active Substance: DAMOCTOCOG ALFA PEGOL
     Indication: Factor VIII deficiency
     Route: 042
     Dates: start: 20250709, end: 20250709
  6. JIVI [Suspect]
     Active Substance: DAMOCTOCOG ALFA PEGOL
     Indication: Factor VIII deficiency
     Route: 042
     Dates: start: 20250806

REACTIONS (5)
  - Haemarthrosis [Recovered/Resolved]
  - Haemarthrosis [None]
  - Haemarthrosis [Recovered/Resolved]
  - Accident [None]
  - Joint injury [None]

NARRATIVE: CASE EVENT DATE: 20250510
